FAERS Safety Report 9531314 (Version 1)
Quarter: 2013Q3

REPORT INFORMATION
  Report Type: Spontaneous
  Country: FR (occurrence: FR)
  Receive Date: 20130918
  Receipt Date: 20130918
  Transmission Date: 20140515
  Serious: Yes (Death, Hospitalization)
  Sender: FDA-Public Use
  Company Number: FR-JNJFOC-20130903147

PATIENT
  Age: 63 Year
  Sex: Male

DRUGS (16)
  1. DUROGESIC [Suspect]
     Indication: ANALGESIC INTERVENTION SUPPORTIVE THERAPY
     Route: 062
     Dates: end: 20130724
  2. DOCETAXEL [Suspect]
     Indication: SQUAMOUS CELL CARCINOMA
     Route: 042
     Dates: start: 20130717, end: 20130717
  3. FLUOROURACILE [Suspect]
     Indication: SQUAMOUS CELL CARCINOMA
     Route: 040
     Dates: end: 20130718
  4. FLUOROURACILE [Suspect]
     Indication: SQUAMOUS CELL CARCINOMA
     Route: 040
     Dates: start: 20130717, end: 20130717
  5. CISPLATINE [Suspect]
     Indication: SQUAMOUS CELL CARCINOMA
     Route: 042
     Dates: start: 20130717, end: 20130717
  6. SINTROM [Suspect]
     Indication: PRODUCT USED FOR UNKNOWN INDICATION
     Route: 048
     Dates: end: 20130724
  7. KARDEGIC [Suspect]
     Indication: PRODUCT USED FOR UNKNOWN INDICATION
     Route: 048
  8. NEBILOX [Suspect]
     Indication: PRODUCT USED FOR UNKNOWN INDICATION
     Route: 048
     Dates: end: 20130724
  9. SIMVASTATINE [Suspect]
     Indication: DYSLIPIDAEMIA
     Route: 048
     Dates: end: 20130724
  10. PRAVASTATIN [Suspect]
     Indication: PRODUCT USED FOR UNKNOWN INDICATION
     Route: 065
  11. TEMERIT [Suspect]
     Indication: PRODUCT USED FOR UNKNOWN INDICATION
     Route: 065
  12. MATRIFEN [Suspect]
     Indication: PRODUCT USED FOR UNKNOWN INDICATION
     Route: 065
  13. EMEND [Concomitant]
     Route: 065
  14. ONDANSETRON [Concomitant]
     Route: 065
  15. SOLUMEDROL (METHYLPREDNISOLONE SODIUM SUCCINATE) [Concomitant]
     Route: 065
  16. CALCIUM LEVOFOLINATE [Concomitant]
     Route: 065

REACTIONS (10)
  - Enterocolitis haemorrhagic [Fatal]
  - Leukopenia [Fatal]
  - Lymphopenia [Fatal]
  - Neutropenia [Fatal]
  - Enterobacter infection [Fatal]
  - Enterobacter sepsis [Fatal]
  - Hypothermia [Fatal]
  - Vomiting [Fatal]
  - Rectal haemorrhage [Unknown]
  - General physical health deterioration [Unknown]
